FAERS Safety Report 25400060 (Version 2)
Quarter: 2025Q2

REPORT INFORMATION
  Report Type: Spontaneous
  Country: CZ (occurrence: CZ)
  Receive Date: 20250605
  Receipt Date: 20250627
  Transmission Date: 20250717
  Serious: Yes (Hospitalization, Other)
  Sender: ALIMERA
  Company Number: CZ-ALIMERA SCIENCES INC.-CZ-A16013-25-000179

PATIENT
  Age: 67 Year
  Sex: Female

DRUGS (14)
  1. ILUVIEN [Suspect]
     Active Substance: FLUOCINOLONE ACETONIDE
     Indication: Diabetic retinal oedema
     Dosage: 0.25 MILLIGRAM, QD - LEFT EYE
     Route: 031
     Dates: start: 20250505
  2. ILUVIEN [Suspect]
     Active Substance: FLUOCINOLONE ACETONIDE
     Dosage: 0.25 MILLIGRAM, QD - RIGHT EYE
     Route: 031
     Dates: start: 20240812
  3. SIMBRINZA [Concomitant]
     Active Substance: BRIMONIDINE TARTRATE\BRINZOLAMIDE
     Indication: Product used for unknown indication
     Dosage: GTT, BID
     Route: 061
  4. LATANOPROST\TIMOLOL MALEATE [Concomitant]
     Active Substance: LATANOPROST\TIMOLOL MALEATE
     Indication: Product used for unknown indication
     Dosage: UNK, QD
     Route: 061
  5. PILOCARPINE [Concomitant]
     Active Substance: PILOCARPINE
     Indication: Product used for unknown indication
     Route: 061
  6. DEXAMETHASONE [Concomitant]
     Active Substance: DEXAMETHASONE
     Indication: Product used for unknown indication
     Route: 061
  7. ACETAZOLAMIDE [Concomitant]
     Active Substance: ACETAZOLAMIDE
     Indication: Product used for unknown indication
     Route: 048
  8. MANNITOL [Concomitant]
     Active Substance: MANNITOL
     Indication: Product used for unknown indication
     Route: 042
  9. NOVALGIN (METAMIZOLE SODIUM) [Concomitant]
     Active Substance: METAMIZOLE SODIUM
     Indication: Product used for unknown indication
     Route: 042
  10. TORECAN [Concomitant]
     Active Substance: THIETHYLPERAZINE MALATE
     Indication: Product used for unknown indication
     Route: 030
  11. ADRENALIN [Concomitant]
     Active Substance: EPINEPHRINE
     Indication: Product used for unknown indication
     Route: 057
  12. ATROPINE [Concomitant]
     Active Substance: ATROPINE
     Indication: Product used for unknown indication
     Route: 057
  13. ARTICAINE HYDROCHLORIDE\EPINEPHRINE HYDROCHLORIDE [Concomitant]
     Active Substance: ARTICAINE HYDROCHLORIDE\EPINEPHRINE HYDROCHLORIDE
     Indication: Product used for unknown indication
     Dosage: 0.1 MILLILITER, BID
     Route: 057
  14. DIPROPHOS [Concomitant]
     Active Substance: BETAMETHASONE DIPROPIONATE\BETAMETHASONE SODIUM PHOSPHATE
     Indication: Product used for unknown indication
     Dosage: 0.5 MILLILITER, BID
     Route: 065

REACTIONS (15)
  - Iridocele [Recovered/Resolved]
  - Coloboma [Unknown]
  - Malignant glaucoma [Recovered/Resolved]
  - Choroidal detachment [Recovered/Resolved]
  - Iris adhesions [Unknown]
  - Vitritis [Recovered/Resolved]
  - Hypotony of eye [Recovered/Resolved]
  - Intraocular pressure increased [Recovered/Resolved]
  - Corneal oedema [Recovered/Resolved]
  - Anterior chamber fibrin [Recovered/Resolved]
  - Anterior chamber flare [Recovered/Resolved]
  - Vitrectomy [Recovered/Resolved]
  - Procedural complication [Recovered/Resolved]
  - Visual acuity reduced [Recovered/Resolved]
  - Eye pain [Recovered/Resolved]

NARRATIVE: CASE EVENT DATE: 20250501
